FAERS Safety Report 7746643-9 (Version None)
Quarter: 2011Q3

REPORT INFORMATION
  Report Type: 
  Country: None (occurrence: None)
  Receive Date: 20110908
  Receipt Date: 20110901
  Transmission Date: 20111222
  Serious: Yes (Other)
  Sender: FDA-Public Use
  Company Number: ABR_00232_2011

PATIENT
  Age: 44 Year
  Sex: Female

DRUGS (1)
  1. NITROLINGUAL PUMPSPRAY [Suspect]
     Indication: PRODUCT USED FOR UNKNOWN INDICATION
     Dosage: 0.4 MG SUBLINGUAL
     Route: 060
     Dates: start: 20110826, end: 20110826

REACTIONS (3)
  - DOCUMENTED HYPERSENSITIVITY TO ADMINISTERED DRUG [None]
  - SWOLLEN TONGUE [None]
  - ASTHMA [None]
